FAERS Safety Report 22312158 (Version 7)
Quarter: 2023Q4

REPORT INFORMATION
  Report Type: Report from Study
  Country: US (occurrence: US)
  Receive Date: 20230512
  Receipt Date: 20231008
  Transmission Date: 20240110
  Serious: Yes (Other)
  Sender: FDA-Public Use
  Company Number: US-ABBVIE-4763352

PATIENT
  Sex: Female

DRUGS (6)
  1. RINVOQ [Suspect]
     Active Substance: UPADACITINIB
     Indication: Rheumatoid arthritis
     Dosage: FORM STRENGTH : 15 MILLIGRAM
     Route: 048
     Dates: start: 20230209, end: 202303
  2. RINVOQ [Suspect]
     Active Substance: UPADACITINIB
     Indication: Rheumatoid arthritis
     Dosage: THERAPY RESTARTED
     Route: 048
     Dates: start: 20230519, end: 202306
  3. RINVOQ [Suspect]
     Active Substance: UPADACITINIB
     Indication: Rheumatoid arthritis
     Dosage: FORM STRENGTH: 15 MG
     Route: 048
     Dates: start: 20230519, end: 202306
  4. RINVOQ [Suspect]
     Active Substance: UPADACITINIB
     Indication: Rheumatoid arthritis
     Dosage: FORM STRENGTH: 15 MG
     Route: 048
     Dates: start: 20230619
  5. RINVOQ [Suspect]
     Active Substance: UPADACITINIB
     Indication: Rheumatoid arthritis
     Dosage: FORM STRENGTH: 15 MG?LAST ADMIN DATE 2023
     Route: 048
     Dates: start: 202302
  6. RINVOQ [Suspect]
     Active Substance: UPADACITINIB
     Indication: Rheumatoid arthritis
     Route: 048
     Dates: start: 20230209

REACTIONS (28)
  - Spinal fusion surgery [Unknown]
  - Gait disturbance [Unknown]
  - Inflammation [Unknown]
  - Pain in extremity [Unknown]
  - Drug ineffective [Unknown]
  - Toe operation [Recovering/Resolving]
  - Raynaud^s phenomenon [Unknown]
  - Foot deformity [Recovering/Resolving]
  - Menopause [Unknown]
  - Hot flush [Unknown]
  - Epistaxis [Unknown]
  - Haematochezia [Recovered/Resolved]
  - Depression [Unknown]
  - Dyspnoea [Unknown]
  - Abdominal pain [Unknown]
  - Product dose omission issue [Unknown]
  - Musculoskeletal stiffness [Not Recovered/Not Resolved]
  - Surgery [Unknown]
  - Frequent bowel movements [Unknown]
  - Eye discharge [Unknown]
  - Fibromyalgia [Unknown]
  - Rheumatoid arthritis [Unknown]
  - Intervertebral disc protrusion [Unknown]
  - Gouty arthritis [Unknown]
  - Abdominal pain [Unknown]
  - Spinal fusion surgery [Unknown]
  - Arthritis [Not Recovered/Not Resolved]
  - Dupuytren^s contracture [Not Recovered/Not Resolved]

NARRATIVE: CASE EVENT DATE: 20230101
